FAERS Safety Report 8839167 (Version 2)
Quarter: 2013Q1

REPORT INFORMATION
  Report Type: Spontaneous
  Country: US (occurrence: US)
  Receive Date: 20121015
  Receipt Date: 20130108
  Transmission Date: 20140127
  Serious: No
  Sender: FDA-Public Use
  Company Number: US-009507513-1210USA002878

PATIENT
  Sex: Female

DRUGS (2)
  1. AZASITE [Suspect]
     Indication: INFECTION
     Dosage: 2 GTT, BID
     Route: 047
     Dates: start: 20120928
  2. AZASITE [Suspect]
     Indication: OCULAR ROSACEA

REACTIONS (3)
  - Drug dose omission [Unknown]
  - Product quality issue [Unknown]
  - No adverse event [Unknown]
